FAERS Safety Report 6025882-1 (Version None)
Quarter: 2008Q4

REPORT INFORMATION
  Report Type: 
  Country: None (occurrence: None)
  Receive Date: 20081223
  Receipt Date: 20081211
  Transmission Date: 20090506
  Serious: Yes (Hospitalization)
  Sender: FDA-Public Use
  Company Number: R0001343A

PATIENT
  Age: 75 Year
  Sex: Female
  Weight: 63.9572 kg

DRUGS (8)
  1. METHYLCELLULOSE (FORMULATION UNKNOWN) (METHYLCELLULOSE) [Suspect]
     Indication: CONSTIPATION
     Dosage: ORAL
     Route: 048
     Dates: start: 20050101
  2. BLINDED VACCINE TRIAL MED INJECTION (BLINDED VACCINE TRIAL MED) [Suspect]
     Dosage: INTRAMUSCULAR
     Route: 030
     Dates: start: 20081007, end: 20081007
  3. MORPHINE [Suspect]
     Indication: OSTEOARTHRITIS
     Dosage: ORAL
     Route: 048
     Dates: start: 20070101
  4. TYLENOL NO. 3 (FORMULATION UNKNOWN) (TYLENOL NO. 3) [Suspect]
     Indication: OSTEOARTHRITIS
     Dosage: ORAL
     Route: 048
     Dates: start: 20070101
  5. BISACODYL (FORMULATION UNKNOWN) (BISACODYL) [Suspect]
     Indication: CONSTIPATION
     Dosage: ORAL
     Route: 048
     Dates: start: 20050101
  6. SENOKOT [Suspect]
     Indication: DIVERTICULITIS
     Dosage: ORAL
     Route: 048
     Dates: start: 20050101
  7. POLYETHYLENE GLYCOL [Suspect]
     Indication: CONSTIPATION
     Dosage: ORAL
     Route: 048
     Dates: start: 20050101
  8. MAALOX (FORMULATION UNKNOWN) (MAALOX) [Suspect]
     Indication: CONSTIPATION
     Dosage: ORAL
     Route: 048
     Dates: start: 20050101

REACTIONS (2)
  - CONSTIPATION [None]
  - DIVERTICULITIS [None]
